FAERS Safety Report 11146810 (Version 2)
Quarter: 2015Q2

REPORT INFORMATION
  Report Type: Report from Study
  Country: VE (occurrence: VE)
  Receive Date: 20150528
  Receipt Date: 20150616
  Transmission Date: 20150821
  Serious: No
  Sender: FDA-Public Use
  Company Number: PHHY2015VE064081

PATIENT
  Age: 64 Year
  Sex: Female

DRUGS (3)
  1. ZALDIAR [Concomitant]
     Active Substance: ACETAMINOPHEN\TRAMADOL HYDROCHLORIDE
     Indication: PAIN
     Dosage: 155 MG, UNK
     Route: 065
     Dates: start: 201405, end: 201505
  2. AFINITOR [Suspect]
     Active Substance: EVEROLIMUS
     Indication: OSTEOPOROSIS
     Dosage: 10 MG, QD
     Route: 048
  3. AROMAZIN [Concomitant]
     Indication: BONE DISORDER
     Dosage: 25 MG, QD
     Route: 065

REACTIONS (8)
  - Visual impairment [Unknown]
  - Peripheral swelling [Recovering/Resolving]
  - Crying [Unknown]
  - Arthralgia [Recovering/Resolving]
  - Malaise [Unknown]
  - Vision blurred [Recovering/Resolving]
  - Mobility decreased [Recovering/Resolving]
  - Off label use [Unknown]

NARRATIVE: CASE EVENT DATE: 20150524
